FAERS Safety Report 6202605-4 (Version None)
Quarter: 2009Q2

REPORT INFORMATION
  Report Type: 
  Country: None (occurrence: None)
  Receive Date: 20090521
  Receipt Date: 20090521
  Transmission Date: 20091009
  Serious: Yes (Other)
  Sender: FDA-Public Use
  Company Number: None

PATIENT
  Sex: Female
  Weight: 55.3388 kg

DRUGS (4)
  1. ABILIFY [Suspect]
     Indication: ANXIETY
     Dosage: 5MG DAILY ORAL
     Route: 048
     Dates: start: 20090122
  2. ABILIFY [Suspect]
     Indication: MANIA
     Dosage: 5MG DAILY ORAL
     Route: 048
     Dates: start: 20090122
  3. ABILIFY [Suspect]
     Indication: ANXIETY
     Dosage: 5MG DAILY ORAL
     Route: 048
     Dates: start: 20090402
  4. ABILIFY [Suspect]
     Indication: MANIA
     Dosage: 5MG DAILY ORAL
     Route: 048
     Dates: start: 20090402

REACTIONS (1)
  - SUICIDAL IDEATION [None]
